FAERS Safety Report 5137307-9 (Version None)
Quarter: 2006Q4

REPORT INFORMATION
  Report Type: 
  Country: None (occurrence: None)
  Receive Date: 20061030
  Receipt Date: 20051007
  Transmission Date: 20070319
  Serious: No
  Sender: FDA-Public Use
  Company Number: US-GLAXOSMITHKLINE-A0577543A

PATIENT
  Age: 73 Year
  Sex: Male
  Weight: 72.7 kg

DRUGS (4)
  1. ADVAIR HFA [Suspect]
     Indication: ASTHMA
     Route: 055
     Dates: start: 20020101
  2. SEREVENT [Concomitant]
     Dates: start: 20001201
  3. ALBUTEROL [Concomitant]
     Route: 055
     Dates: start: 20001201
  4. QVAR 40 [Concomitant]
     Route: 055

REACTIONS (1)
  - DYSPHONIA [None]
